FAERS Safety Report 13358108 (Version 1)
Quarter: 2017Q1

REPORT INFORMATION
  Report Type: Spontaneous
  Country: FR (occurrence: FR)
  Receive Date: 20170322
  Receipt Date: 20170322
  Transmission Date: 20170429
  Serious: Yes (Other)
  Sender: FDA-Public Use
  Company Number: FR-ASTELLAS-2017US010081

PATIENT
  Age: 52 Year
  Sex: Female

DRUGS (1)
  1. VESICARE [Suspect]
     Active Substance: SOLIFENACIN SUCCINATE
     Indication: URINARY INCONTINENCE
     Dosage: 10 MG (1DF), ONCE DAILY (IN THE MORNING)
     Route: 065
     Dates: start: 201702, end: 20170306

REACTIONS (4)
  - Pain [Not Recovered/Not Resolved]
  - Dry mouth [Recovered/Resolved]
  - Musculoskeletal disorder [Not Recovered/Not Resolved]
  - Oedema peripheral [Not Recovered/Not Resolved]
